FAERS Safety Report 19639959 (Version 1)
Quarter: 2021Q3

REPORT INFORMATION
  Report Type: Spontaneous
  Country: US (occurrence: US)
  Receive Date: 20210729
  Receipt Date: 20210729
  Transmission Date: 20211014
  Serious: No
  Sender: FDA-Public Use
  Company Number: US-ROCHE-2817667

PATIENT

DRUGS (4)
  1. HEPARIN [Concomitant]
     Active Substance: HEPARIN SODIUM
     Route: 042
     Dates: start: 20210416
  2. TNKASE [Suspect]
     Active Substance: TENECTEPLASE
     Dosage: FREQUENCY 1
     Route: 040
     Dates: start: 20210416
  3. HEPARIN [Concomitant]
     Active Substance: HEPARIN SODIUM
     Indication: PULMONARY EMBOLISM
     Route: 042
     Dates: start: 202104
  4. TNKASE [Suspect]
     Active Substance: TENECTEPLASE
     Indication: PULMONARY EMBOLISM
     Dosage: FREQUENCY 1
     Route: 040
     Dates: start: 202104

REACTIONS (2)
  - Off label use [Unknown]
  - No adverse event [Unknown]

NARRATIVE: CASE EVENT DATE: 202104
